FAERS Safety Report 11104942 (Version 1)
Quarter: 2015Q2

REPORT INFORMATION
  Report Type: Spontaneous
  Country: US (occurrence: US)
  Receive Date: 20150511
  Receipt Date: 20150511
  Transmission Date: 20150821
  Serious: Yes (Other)
  Sender: FDA-Public Use
  Company Number: US-PFIZER INC-2015152144

PATIENT
  Age: 61 Year
  Sex: Male
  Weight: 102.4 kg

DRUGS (10)
  1. FLOMAX [Concomitant]
     Active Substance: TAMSULOSIN HYDROCHLORIDE
     Dosage: 0.4 MG, 1X/DAY
  2. OMEGA 3 [Concomitant]
     Active Substance: OMEGA-3 FATTY ACIDS
     Dosage: 360 MG, 1X/DAY
  3. CRESTOR [Concomitant]
     Active Substance: ROSUVASTATIN CALCIUM
     Dosage: UNK
  4. LYRICA [Suspect]
     Active Substance: PREGABALIN
     Indication: BACK DISORDER
  5. LYRICA [Suspect]
     Active Substance: PREGABALIN
     Indication: NEURALGIA
     Dosage: STARTED FROM MINIMUM DOSAGE
     Dates: start: 201009
  6. LYRICA [Suspect]
     Active Substance: PREGABALIN
     Indication: HYPOAESTHESIA
  7. ASPIRIN. [Concomitant]
     Active Substance: ASPIRIN
     Dosage: 325 MG, 1X/DAY
  8. CYMBALTA [Concomitant]
     Active Substance: DULOXETINE HYDROCHLORIDE
     Dosage: 60 MG, 1X/DAY
  9. FLONASE [Concomitant]
     Active Substance: FLUTICASONE PROPIONATE
     Indication: PROSTATIC DISORDER
     Dosage: 50 MG, 1X/DAY
  10. BISOPROLOL/HYDROCHLOROTHIAZID [Concomitant]
     Indication: BLOOD PRESSURE ABNORMAL
     Dosage: (BISOPROLOL 5 MG /6.25 HYDROCHLOROTHIAZIDE), 1X/DAY

REACTIONS (3)
  - Arthropathy [Unknown]
  - Neuralgia [Unknown]
  - Drug ineffective [Unknown]
